FAERS Safety Report 7108290-1 (Version None)
Quarter: 2010Q4

REPORT INFORMATION
  Report Type: 
  Country: None (occurrence: None)
  Receive Date: 20101115
  Receipt Date: 20101115
  Transmission Date: 20110411
  Serious: Yes (Disabling, Other)
  Sender: FDA-Public Use
  Company Number: None

PATIENT
  Age: 69 Year
  Sex: Female
  Weight: 46.7205 kg

DRUGS (1)
  1. FOSAMAX [Suspect]
     Indication: BONE DENSITY ABNORMAL
     Dosage: 70 MG 1 TABLET PER WK
     Dates: start: 20031027, end: 20100714

REACTIONS (3)
  - ABSCESS [None]
  - OSTEONECROSIS OF JAW [None]
  - TOOTH DISORDER [None]
